FAERS Safety Report 8430602-7 (Version None)
Quarter: 2012Q2

REPORT INFORMATION
  Report Type: 
  Country: None (occurrence: None)
  Receive Date: 20120606
  Receipt Date: 20120606
  Transmission Date: 20120825
  Serious: Yes (Hospitalization)
  Sender: FDA-Public Use
  Company Number: None

PATIENT
  Sex: Female
  Weight: 88.18 kg

DRUGS (10)
  1. VITAMIN B COMPLEX CAP [Concomitant]
  2. LORTAB [Concomitant]
  3. BENADRYL [Concomitant]
  4. TAXOL [Suspect]
     Dosage: 348 MG
     Dates: end: 20110419
  5. LOVONOX [Concomitant]
  6. PHENERGAN [Concomitant]
  7. ALOXI IV PRE-CHEMO [Concomitant]
  8. DECADRON [Concomitant]
  9. ZANTAC [Concomitant]
  10. TOPOTECAN [Suspect]
     Dosage: 4.5 MG
     Dates: end: 20110421

REACTIONS (7)
  - VARICOSE VEIN [None]
  - DEEP VEIN THROMBOSIS [None]
  - HYDRONEPHROSIS [None]
  - THROMBOSIS [None]
  - HAEMATURIA [None]
  - FLANK PAIN [None]
  - LOCAL SWELLING [None]
